FAERS Safety Report 12335556 (Version 1)
Quarter: 2016Q2

REPORT INFORMATION
  Report Type: Spontaneous
  Country: RU (occurrence: RU)
  Receive Date: 20160505
  Receipt Date: 20160505
  Transmission Date: 20160815
  Serious: Yes (Other)
  Sender: FDA-Public Use
  Company Number: RU-ROCHE-1751909

PATIENT
  Sex: Male

DRUGS (3)
  1. LOZAP (LOSARTAN POTASSIUM) [Concomitant]
  2. AMLOVAS [Concomitant]
  3. LUCENTIS [Suspect]
     Active Substance: RANIBIZUMAB
     Indication: EYE OEDEMA
     Route: 050

REACTIONS (1)
  - Blood pressure increased [Recovered/Resolved]
